FAERS Safety Report 25218565 (Version 2)
Quarter: 2025Q2

REPORT INFORMATION
  Report Type: Spontaneous
  Country: JP (occurrence: JP)
  Receive Date: 20250421
  Receipt Date: 20250425
  Transmission Date: 20250716
  Serious: Yes (Life-Threatening, Other)
  Sender: GLAXOSMITHKLINE
  Company Number: JP-GSK-JP2025JPN046157

PATIENT

DRUGS (12)
  1. FLUTICASONE FUROATE\VILANTEROL TRIFENATATE [Suspect]
     Active Substance: FLUTICASONE FUROATE\VILANTEROL TRIFENATATE
     Indication: Cough variant asthma
     Dosage: 200 ?G, 1D
     Route: 055
     Dates: start: 20250220
  2. MONTELUKAST [Suspect]
     Active Substance: MONTELUKAST
  3. AMLODIPINE [Concomitant]
     Active Substance: AMLODIPINE BESYLATE
  4. LOSARTAN [Concomitant]
     Active Substance: LOSARTAN
  5. LIPITOR [Concomitant]
     Active Substance: ATORVASTATIN CALCIUM
  6. RYBELSUS [Concomitant]
     Active Substance: SEMAGLUTIDE
  7. JARDIANCE [Concomitant]
     Active Substance: EMPAGLIFLOZIN
  8. JUVELA [Concomitant]
     Active Substance: .ALPHA.-TOCOPHEROL\RETINOL
  9. FEXOFENADINE [Concomitant]
     Active Substance: FEXOFENADINE HYDROCHLORIDE
  10. HERBALS [Concomitant]
     Active Substance: HERBALS
  11. HERBALS [Concomitant]
     Active Substance: HERBALS
  12. LULICONAZOLE [Concomitant]
     Active Substance: LULICONAZOLE

REACTIONS (8)
  - Dyspnoea [Recovered/Resolved]
  - Increased upper airway secretion [Recovered/Resolved]
  - Anaphylactic reaction [Unknown]
  - Dysphonia [Unknown]
  - Throat irritation [Unknown]
  - Oral mucosal discolouration [Unknown]
  - Pharyngeal oedema [Unknown]
  - Bronchospasm [Unknown]

NARRATIVE: CASE EVENT DATE: 20250405
